FAERS Safety Report 18702652 (Version 1)
Quarter: 2021Q1

REPORT INFORMATION
  Report Type: Spontaneous
  Country: US (occurrence: US)
  Receive Date: 20210105
  Receipt Date: 20210105
  Transmission Date: 20210419
  Serious: Yes (Other)
  Sender: FDA-Public Use
  Company Number: US-GLAXOSMITHKLINE-US2020GSK257054

PATIENT
  Sex: Male

DRUGS (1)
  1. SUMATRIPTAN (SUMATRIPTAN SUCCINATE) [Suspect]
     Active Substance: SUMATRIPTAN SUCCINATE
     Indication: MIGRAINE
     Dosage: 8?10 TIMES PER MONTH

REACTIONS (7)
  - Renal tubular disorder [Unknown]
  - Renal vessel disorder [Unknown]
  - Renal atrophy [Unknown]
  - Chronic kidney disease [Unknown]
  - Blood creatinine increased [Recovered/Resolved]
  - Kidney fibrosis [Unknown]
  - Renal arteriosclerosis [Unknown]
